FAERS Safety Report 21245165 (Version 2)
Quarter: 2022Q3

REPORT INFORMATION
  Report Type: Report from Study
  Country: FR (occurrence: FR)
  Receive Date: 20220823
  Receipt Date: 20220908
  Transmission Date: 20221027
  Serious: Yes (Death)
  Sender: FDA-Public Use
  Company Number: FR-GILEAD-2022-0594540

PATIENT
  Sex: Female
  Weight: 90 kg

DRUGS (1)
  1. SACITUZUMAB GOVITECAN [Suspect]
     Active Substance: SACITUZUMAB GOVITECAN
     Indication: Triple negative breast cancer
     Dosage: 800
     Route: 042
     Dates: start: 20220718, end: 20220725

REACTIONS (2)
  - Colitis [Fatal]
  - Aplasia [Fatal]

NARRATIVE: CASE EVENT DATE: 20220729
